FAERS Safety Report 18215167 (Version 1)
Quarter: 2020Q3

REPORT INFORMATION
  Report Type: Spontaneous
  Country: FR (occurrence: FR)
  Receive Date: 20200831
  Receipt Date: 20200831
  Transmission Date: 20201103
  Serious: Yes (Other)
  Sender: FDA-Public Use
  Company Number: PT-SUNOVION-2020SUN002515

PATIENT

DRUGS (2)
  1. ZEBINIX [Suspect]
     Active Substance: ESLICARBAZEPINE ACETATE
     Indication: EPILEPSY
     Dosage: 800 MILLIGRAM
     Route: 048
     Dates: start: 20191201
  2. KEPPRA [Suspect]
     Active Substance: LEVETIRACETAM
     Indication: EPILEPSY
     Dosage: UNKNOWN
     Route: 065
     Dates: start: 2007, end: 2017

REACTIONS (5)
  - Migraine [Not Recovered/Not Resolved]
  - Anxiety [Recovered/Resolved with Sequelae]
  - Insomnia [Not Recovered/Not Resolved]
  - Phobia [Recovering/Resolving]
  - Nervousness [Not Recovered/Not Resolved]

NARRATIVE: CASE EVENT DATE: 201912
